FAERS Safety Report 5645334-8 (Version None)
Quarter: 2008Q1

REPORT INFORMATION
  Report Type: 
  Country: None (occurrence: None)
  Receive Date: 20080229
  Receipt Date: 20080226
  Transmission Date: 20080703
  Serious: Yes (Other)
  Sender: FDA-Public Use
  Company Number: B0506097A

PATIENT
  Age: 10 Year
  Sex: Male
  Weight: 33 kg

DRUGS (4)
  1. RELENZA [Suspect]
     Indication: INFLUENZA
     Dosage: 10MG TWICE PER DAY
     Route: 055
     Dates: start: 20080125, end: 20080129
  2. ASVERIN [Concomitant]
     Dosage: 60MG PER DAY
     Route: 048
     Dates: start: 20080125
  3. MUCODYNE [Concomitant]
     Dosage: 750MG PER DAY
     Route: 048
     Dates: start: 20080125
  4. CALONAL [Concomitant]
     Route: 048
     Dates: start: 20080125

REACTIONS (1)
  - DELIRIUM [None]
